FAERS Safety Report 22077591 (Version 1)
Quarter: 2023Q1

REPORT INFORMATION
  Report Type: Spontaneous
  Country: MX (occurrence: None)
  Receive Date: 20230309
  Receipt Date: 20230309
  Transmission Date: 20230417
  Serious: Yes (Other)
  Sender: FDA-Public Use
  Company Number: MX-ROCHE-3296969

PATIENT
  Sex: Male

DRUGS (7)
  1. BEVACIZUMAB [Suspect]
     Active Substance: BEVACIZUMAB
     Indication: Colon cancer
     Dosage: 4 CYCLES
     Route: 042
  2. CAPECITABINE [Suspect]
     Active Substance: CAPECITABINE
     Indication: Colon cancer
     Dosage: 4 CYCLES
     Route: 048
  3. OXALIPLATIN [Concomitant]
     Active Substance: OXALIPLATIN
     Dosage: 4 CYCLES
  4. FENOFIBRATE [Concomitant]
     Active Substance: FENOFIBRATE
  5. OMACOR [Concomitant]
     Active Substance: OMEGA-3-ACID ETHYL ESTERS
  6. TELMISARTAN [Concomitant]
     Active Substance: TELMISARTAN
     Indication: Hypertension
  7. HYDROCHLOROTHIAZIDE [Concomitant]
     Active Substance: HYDROCHLOROTHIAZIDE
     Indication: Hypertension

REACTIONS (9)
  - Metastases to liver [Unknown]
  - Hepatic necrosis [Unknown]
  - Functional gastrointestinal disorder [Unknown]
  - Inflammation [Unknown]
  - Abdominal adhesions [Unknown]
  - Umbilical hernia [Unknown]
  - Diverticulum intestinal [Unknown]
  - Aortic arteriosclerosis [Unknown]
  - Pulmonary fibrosis [Unknown]
